FAERS Safety Report 9469119 (Version 1)
Quarter: 2013Q3

REPORT INFORMATION
  Report Type: Spontaneous
  Country: US (occurrence: US)
  Receive Date: 20130821
  Receipt Date: 20130821
  Transmission Date: 20140515
  Serious: No
  Sender: FDA-Public Use
  Company Number: US-NOVEN-13US006960

PATIENT
  Age: 59 Year
  Sex: Female

DRUGS (3)
  1. MINIVELLE [Suspect]
     Indication: HOT FLUSH
     Dosage: 0.0375 MG, QD
     Route: 062
     Dates: start: 20130423, end: 20130510
  2. MINIVELLE [Suspect]
     Dosage: 0.05 MG, QD
     Route: 062
     Dates: start: 20130510, end: 20130521
  3. PROGESTINE [Concomitant]
     Indication: MENOPAUSE
     Dosage: UNK

REACTIONS (4)
  - Energy increased [Recovered/Resolved]
  - Palpitations [Recovered/Resolved]
  - Fatigue [Recovering/Resolving]
  - Insomnia [Recovered/Resolved]
